FAERS Safety Report 23936865 (Version 1)
Quarter: 2024Q2

REPORT INFORMATION
  Report Type: Spontaneous
  Country: CA (occurrence: None)
  Receive Date: 20240604
  Receipt Date: 20240604
  Transmission Date: 20240716
  Serious: Yes (Other)
  Sender: FDA-Public Use
  Company Number: CA-PFIZER INC-202400095337

PATIENT
  Age: 63 Year
  Sex: Female

DRUGS (13)
  1. METHOTREXATE [Suspect]
     Active Substance: METHOTREXATE
     Indication: Rheumatoid arthritis
  2. METHOTREXATE [Suspect]
     Active Substance: METHOTREXATE
     Dosage: 2X/WEEK
  3. METHOTREXATE [Suspect]
     Active Substance: METHOTREXATE
     Dates: start: 202405
  4. ABILIFY [Concomitant]
     Active Substance: ARIPIPRAZOLE
  5. ESCITALOPRAM [Concomitant]
     Active Substance: ESCITALOPRAM OXALATE
  6. FOLIC ACID [Concomitant]
     Active Substance: FOLIC ACID
  7. RUXIENCE [Concomitant]
     Active Substance: RITUXIMAB-PVVR
     Indication: Rheumatoid arthritis
     Dosage: SINGLE DOSE
     Dates: start: 20240429, end: 20240429
  8. SYNTHROID [Concomitant]
     Active Substance: LEVOTHYROXINE SODIUM
  9. SALICYLIC ACID [Concomitant]
     Active Substance: SALICYLIC ACID
  10. TYLENOL WITH CODEINE [Concomitant]
     Active Substance: ACETAMINOPHEN\CODEINE PHOSPHATE
     Dosage: AS NEEDED
  11. TYLENOL WITH CODEINE [Concomitant]
     Active Substance: ACETAMINOPHEN\CODEINE PHOSPHATE
     Dosage: AS NEEDED
  12. CHOLECALCIFEROL [Concomitant]
     Active Substance: CHOLECALCIFEROL
  13. VITAMIN C [Concomitant]
     Active Substance: ASCORBIC ACID

REACTIONS (10)
  - Drug ineffective [Unknown]
  - Inappropriate schedule of product administration [Unknown]
  - Rheumatoid arthritis [Unknown]
  - Urinary tract infection [Unknown]
  - Cystitis [Unknown]
  - Synovial cyst [Unknown]
  - Osteoarthritis [Unknown]
  - Meniscus injury [Unknown]
  - Intervertebral disc degeneration [Unknown]
  - Overdose [Unknown]

NARRATIVE: CASE EVENT DATE: 20240501
